FAERS Safety Report 13443572 (Version 1)
Quarter: 2017Q2

REPORT INFORMATION
  Report Type: Spontaneous
  Country: US (occurrence: US)
  Receive Date: 20170413
  Receipt Date: 20170413
  Transmission Date: 20170830
  Serious: No
  Sender: FDA-Public Use
  Company Number: None

PATIENT
  Age: 65 Year
  Sex: Female

DRUGS (1)
  1. BOTOX [Suspect]
     Active Substance: ONABOTULINUMTOXINA
     Indication: MIGRAINE WITH AURA

REACTIONS (4)
  - Eye infection [None]
  - Eyelid ptosis [None]
  - Vision blurred [None]
  - Dysphonia [None]

NARRATIVE: CASE EVENT DATE: 20170101
